FAERS Safety Report 13914418 (Version 1)
Quarter: 2017Q3

REPORT INFORMATION
  Report Type: Spontaneous
  Country: US (occurrence: US)
  Receive Date: 20170829
  Receipt Date: 20170829
  Transmission Date: 20171127
  Serious: No
  Sender: FDA-Public Use
  Company Number: US-PFIZER INC-2017370855

PATIENT
  Age: 69 Year
  Sex: Female

DRUGS (1)
  1. IBRANCE [Suspect]
     Active Substance: PALBOCICLIB
     Dosage: UNK
     Dates: start: 201704

REACTIONS (4)
  - Therapeutic response unexpected [Unknown]
  - Alopecia [Unknown]
  - Pre-existing condition improved [Unknown]
  - Fatigue [Unknown]

NARRATIVE: CASE EVENT DATE: 2017
